FAERS Safety Report 6464602-3 (Version None)
Quarter: 2009Q4

REPORT INFORMATION
  Report Type: 
  Country: None (occurrence: None)
  Receive Date: 20091201
  Receipt Date: 20091124
  Transmission Date: 20100525
  Serious: Yes (Hospitalization)
  Sender: FDA-Public Use
  Company Number: US-MERCK-0908USA01097

PATIENT
  Sex: Female

DRUGS (21)
  1. JANUVIA [Suspect]
     Route: 048
     Dates: start: 20090401
  2. VITAMINS (UNSPECIFIED) [Concomitant]
     Route: 048
  3. NASONEX [Concomitant]
     Route: 065
  4. PREMPRO [Concomitant]
     Route: 048
  5. OMEGA-3 MARINE TRIGLYCERIDES [Concomitant]
     Route: 048
  6. GLUCOSAMINE SULFATE [Concomitant]
     Route: 048
  7. LISINOPRIL [Concomitant]
     Route: 048
  8. CLINORIL [Concomitant]
     Route: 048
  9. BACTROBAN [Concomitant]
     Route: 061
  10. FUROSEMIDE [Concomitant]
     Route: 048
  11. MIACALCIN [Concomitant]
     Route: 061
  12. LEVAQUIN [Concomitant]
     Route: 048
  13. ASPIRIN [Concomitant]
     Route: 048
  14. SKELAXIN [Concomitant]
     Route: 048
  15. ACTOPLUS MET [Concomitant]
     Route: 048
  16. VYTORIN [Concomitant]
     Route: 048
  17. FEXOFENADINE HYDROCHLORIDE [Concomitant]
     Route: 048
  18. OMEPRAZOLE [Concomitant]
     Route: 048
  19. NOVOLOG [Concomitant]
     Route: 058
  20. ALPRAZOLAM [Concomitant]
     Route: 048
  21. CYMBALTA [Concomitant]
     Route: 048

REACTIONS (2)
  - BLOOD GLUCOSE DECREASED [None]
  - UNRESPONSIVE TO STIMULI [None]
